FAERS Safety Report 14484103 (Version 2)
Quarter: 2018Q1

REPORT INFORMATION
  Report Type: Report from Study
  Country: CA (occurrence: CA)
  Receive Date: 20180205
  Receipt Date: 20180208
  Transmission Date: 20180509
  Serious: No
  Sender: FDA-Public Use
  Company Number: CA-ROCHE-2061636

PATIENT
  Age: 72 Year
  Sex: Male

DRUGS (4)
  1. ESBRIET [Suspect]
     Active Substance: PIRFENIDONE
     Indication: IDIOPATHIC PULMONARY FIBROSIS
     Route: 048
     Dates: start: 20180108
  2. ALFUZOSIN [Concomitant]
     Active Substance: ALFUZOSIN
  3. BETAHISTINE [Concomitant]
     Active Substance: BETAHISTINE
  4. DUTASTERIDE. [Concomitant]
     Active Substance: DUTASTERIDE

REACTIONS (5)
  - Dyspnoea [Not Recovered/Not Resolved]
  - Dyspnoea exertional [Not Recovered/Not Resolved]
  - Eye pruritus [Not Recovered/Not Resolved]
  - Pulmonary pain [Recovered/Resolved]
  - Pruritus [Not Recovered/Not Resolved]

NARRATIVE: CASE EVENT DATE: 20180108
